FAERS Safety Report 19194306 (Version 1)
Quarter: 2021Q2

REPORT INFORMATION
  Report Type: Spontaneous
  Country: US (occurrence: US)
  Receive Date: 20210428
  Receipt Date: 20210428
  Transmission Date: 20210717
  Serious: Yes (Hospitalization)
  Sender: FDA-Public Use
  Company Number: None

PATIENT
  Age: 64 Year
  Sex: Male

DRUGS (22)
  1. TACROLIMUS. [Suspect]
     Active Substance: TACROLIMUS
     Indication: CHRONIC KIDNEY DISEASE
     Route: 048
     Dates: start: 20210218
  2. NIFEDIPINE. [Concomitant]
     Active Substance: NIFEDIPINE
     Dates: start: 20210303
  3. MICROLET MS LANCETS [Concomitant]
  4. VALGANCICLOV [Concomitant]
     Dates: start: 20210304
  5. FUROSEMIDE. [Concomitant]
     Active Substance: FUROSEMIDE
     Dates: start: 20210407
  6. PREDNISONE. [Concomitant]
     Active Substance: PREDNISONE
     Dates: start: 20210303
  7. NOVOLOG [Concomitant]
     Active Substance: INSULIN ASPART
     Dates: start: 20210114
  8. CALVEDI LOL [Concomitant]
     Dates: start: 20201111
  9. PAROXETIN E [Concomitant]
     Dates: start: 20210330
  10. NYSTATIN. [Concomitant]
     Active Substance: NYSTATIN
     Dates: start: 20210303
  11. SODIUM BICAR [Concomitant]
     Dates: start: 20210112
  12. SMZ?TMP [Concomitant]
     Active Substance: SULFAMETHOXAZOLE\TRIMETHOPRIM
     Dates: start: 20210202
  13. HYDRALAZINE [Concomitant]
     Active Substance: HYDRALAZINE HYDROCHLORIDE
     Dates: start: 20210304
  14. AMLODIPINE [Concomitant]
     Active Substance: AMLODIPINE BESYLATE
     Dates: start: 20210217
  15. BD PEN NEEDLE MS [Concomitant]
     Dates: start: 20210215
  16. HYDROCHLOROT [Concomitant]
     Active Substance: HYDROCHLOROTHIAZIDE
     Dates: start: 20210123
  17. LANTUS SOLOS INJ [Concomitant]
     Dates: start: 20210311
  18. TACROLIMUS. [Concomitant]
     Active Substance: TACROLIMUS
     Dates: start: 20210321
  19. LOKELMA [Concomitant]
     Active Substance: SODIUM ZIRCONIUM CYCLOSILICATE
     Dates: start: 20210115
  20. ATORVASTATIN [Concomitant]
     Active Substance: ATORVASTATIN
     Dates: start: 20210123
  21. TACROLIMUS. [Suspect]
     Active Substance: TACROLIMUS
     Indication: ANAEMIA
     Route: 048
     Dates: start: 20210218
  22. PANTOPRAZOLE [Concomitant]
     Active Substance: PANTOPRAZOLE
     Dates: start: 20210320

REACTIONS (1)
  - Transplant rejection [None]

NARRATIVE: CASE EVENT DATE: 20210427
